FAERS Safety Report 17445799 (Version 1)
Quarter: 2020Q1

REPORT INFORMATION
  Report Type: Spontaneous
  Country: DK (occurrence: DK)
  Receive Date: 20200221
  Receipt Date: 20200221
  Transmission Date: 20200409
  Serious: Yes (Other)
  Sender: FDA-Public Use
  Company Number: DK-MYLANLABS-2020M1018438

PATIENT
  Age: 3 Year
  Sex: Male

DRUGS (1)
  1. EVEROLIMUS. [Suspect]
     Active Substance: EVEROLIMUS
     Indication: EPILEPSY
     Dosage: 9 MG/M2 (5-9MG/M2)
     Route: 065

REACTIONS (4)
  - Status epilepticus [Unknown]
  - Pyrexia [Unknown]
  - Infection [Unknown]
  - Neutropenia [Unknown]
